FAERS Safety Report 21264104 (Version 2)
Quarter: 2022Q3

REPORT INFORMATION
  Report Type: Spontaneous
  Country: CN (occurrence: CN)
  Receive Date: 20220829
  Receipt Date: 20220909
  Transmission Date: 20221027
  Serious: Yes (Hospitalization)
  Sender: FDA-Public Use
  Company Number: CN-BRISTOL-MYERS SQUIBB COMPANY-2022-095139

PATIENT
  Age: 58 Year
  Sex: Male
  Weight: 82 kg

DRUGS (3)
  1. OPDIVO [Suspect]
     Active Substance: NIVOLUMAB
     Indication: Lung neoplasm malignant
     Route: 041
     Dates: start: 20220709
  2. OPDIVO [Suspect]
     Active Substance: NIVOLUMAB
     Route: 041
     Dates: start: 20220726
  3. OPDIVO [Suspect]
     Active Substance: NIVOLUMAB
     Route: 041
     Dates: start: 20220812

REACTIONS (7)
  - Cough [Unknown]
  - Malaise [Unknown]
  - Nausea [Unknown]
  - Insomnia [Unknown]
  - Pyrexia [Unknown]
  - Intentional product use issue [Unknown]
  - Condition aggravated [Unknown]
